FAERS Safety Report 5878340-9 (Version None)
Quarter: 2008Q3

REPORT INFORMATION
  Report Type: 
  Country: None (occurrence: None)
  Receive Date: 20080911
  Receipt Date: 20080830
  Transmission Date: 20090109
  Serious: Yes (Other)
  Sender: FDA-Public Use
  Company Number: US-PFIZER INC-2008020310

PATIENT
  Sex: Female
  Weight: 68 kg

DRUGS (7)
  1. LYRICA [Suspect]
     Indication: FIBROMYALGIA
     Dates: start: 20080201
  2. CYMBALTA [Concomitant]
     Indication: FIBROMYALGIA
  3. CYMBALTA [Concomitant]
     Indication: DEPRESSION
  4. XANAX [Concomitant]
     Indication: SLEEP DISORDER
  5. MARIJUANA [Concomitant]
  6. VICOPROFEN [Concomitant]
     Route: 048
  7. ALL OTHER THERAPEUTIC PRODUCTS [Concomitant]

REACTIONS (3)
  - CONFUSIONAL STATE [None]
  - LOSS OF EMPLOYMENT [None]
  - SOMNOLENCE [None]
